FAERS Safety Report 4538699-1 (Version None)
Quarter: 2004Q4

REPORT INFORMATION
  Report Type: 
  Country: None (occurrence: None)
  Receive Date: 20041222
  Receipt Date: 20041203
  Transmission Date: 20050328
  Serious: Yes (Other)
  Sender: FDA-Public Use
  Company Number: PAR COMPLAINT # 04-315

PATIENT

DRUGS (1)
  1. IBUPROFEN [Suspect]
     Indication: OSTEOARTHRITIS
     Dosage: 2400 MG

REACTIONS (14)
  - ABDOMINAL PAIN [None]
  - CONSTIPATION [None]
  - DIARRHOEA [None]
  - DYSPEPSIA [None]
  - FLATULENCE [None]
  - GASTRODUODENAL ULCER [None]
  - HEADACHE [None]
  - HELICOBACTER PYLORI IDENTIFICATION TEST POSITIVE [None]
  - HYPERTENSION [None]
  - NAUSEA [None]
  - POST PROCEDURAL COMPLICATION [None]
  - THERAPY NON-RESPONDER [None]
  - TREATMENT NONCOMPLIANCE [None]
  - UPPER RESPIRATORY TRACT INFECTION [None]
